FAERS Safety Report 13746915 (Version 1)
Quarter: 2017Q3

REPORT INFORMATION
  Report Type: Spontaneous
  Country: TR (occurrence: TR)
  Receive Date: 20170712
  Receipt Date: 20170712
  Transmission Date: 20171127
  Serious: Yes (Other)
  Sender: FDA-Public Use
  Company Number: PHHY2017TR102547

PATIENT
  Age: 82 Year
  Sex: Male

DRUGS (1)
  1. CO-DIOVAN [Suspect]
     Active Substance: HYDROCHLOROTHIAZIDE\VALSARTAN
     Indication: HYPERTENSION
     Dosage: 1 DF, QD
     Route: 048

REACTIONS (7)
  - Glomerular filtration rate decreased [Unknown]
  - Heart rate decreased [Unknown]
  - Blood creatinine increased [Unknown]
  - Renal impairment [Unknown]
  - Gait inability [Unknown]
  - Blood urea decreased [Unknown]
  - Wrong technique in product usage process [Unknown]
